FAERS Safety Report 8974139 (Version 1)
Quarter: 2012Q4

REPORT INFORMATION
  Report Type: Spontaneous
  Country: IT (occurrence: None)
  Receive Date: 20121211
  Receipt Date: 20121211
  Transmission Date: 20130627
  Serious: No
  Sender: FDA-Public Use
  Company Number: 1211IT006166

PATIENT
  Age: 36 Year
  Sex: Female
  Weight: 58 kg

DRUGS (2)
  1. ISOCEF [Suspect]
     Indication: PHARYNGITIS
     Route: 048
     Dates: start: 20121108, end: 20121110
  2. MONTEGEN (MONTELUKAST SODIUM) [Concomitant]

REACTIONS (1)
  - Dermatitis [None]
